FAERS Safety Report 5325169-6 (Version None)
Quarter: 2007Q2

REPORT INFORMATION
  Report Type: 
  Country: None (occurrence: None)
  Receive Date: 20070515
  Receipt Date: 20070511
  Transmission Date: 20071010
  Serious: Yes (Hospitalization, Disabling)
  Sender: FDA-Public Use
  Company Number: A0650999A

PATIENT
  Age: 15 Year
  Sex: Female

DRUGS (3)
  1. ZOFRAN [Suspect]
     Indication: NAUSEA
     Dosage: 32MG PER DAY
     Route: 042
     Dates: start: 20070401, end: 20070501
  2. ZOFRAN [Suspect]
     Route: 048
     Dates: start: 20070501, end: 20070501
  3. NO CONCURRENT MEDICATION [Concomitant]

REACTIONS (6)
  - BLEPHAROSPASM [None]
  - DEPRESSED LEVEL OF CONSCIOUSNESS [None]
  - DRUG EXPOSURE DURING PREGNANCY [None]
  - GRAND MAL CONVULSION [None]
  - RASH [None]
  - SOMNOLENCE [None]
